FAERS Safety Report 23711495 (Version 1)
Quarter: 2024Q2

REPORT INFORMATION
  Report Type: Report from Study
  Country: BE (occurrence: BE)
  Receive Date: 20240405
  Receipt Date: 20240405
  Transmission Date: 20240716
  Serious: Yes (Other)
  Sender: FDA-Public Use
  Company Number: BE-BEH-2023164309

PATIENT
  Sex: Female

DRUGS (3)
  1. HUMAN IMMUNOGLOBULIN G [Suspect]
     Active Substance: HUMAN IMMUNOGLOBULIN G
     Indication: Primary immunodeficiency syndrome
     Dosage: UNK
     Route: 058
  2. HIZENTRA [Suspect]
     Active Substance: HUMAN IMMUNOGLOBULIN G
     Indication: Primary immunodeficiency syndrome
     Dosage: 1 GRAM
     Route: 058
  3. HIZENTRA [Suspect]
     Active Substance: HUMAN IMMUNOGLOBULIN G
     Dosage: 1 GRAM
     Route: 058

REACTIONS (16)
  - Lymphadenopathy [Unknown]
  - Livedo reticularis [Unknown]
  - Limb injury [Unknown]
  - Pneumonia [Unknown]
  - Autoinflammatory disease [Unknown]
  - Hepatomegaly [Unknown]
  - Growth retardation [Unknown]
  - Quality of life decreased [Unknown]
  - Anaemia [Unknown]
  - Malaise [Unknown]
  - Therapeutic product effect incomplete [Unknown]
  - Stress [Unknown]
  - Lymph node pain [Unknown]
  - Alopecia [Unknown]
  - Social problem [Unknown]
  - Fatigue [Unknown]
